FAERS Safety Report 7431928-6 (Version None)
Quarter: 2011Q2

REPORT INFORMATION
  Report Type: 
  Country: None (occurrence: None)
  Receive Date: 20110422
  Receipt Date: 20110414
  Transmission Date: 20111010
  Serious: Yes (Hospitalization, Disabling)
  Sender: FDA-Public Use
  Company Number: JP-JNJFOC-20100604682

PATIENT
  Sex: Female
  Weight: 45 kg

DRUGS (4)
  1. MUCOSTA [Concomitant]
     Route: 048
  2. DOXIL [Suspect]
     Indication: OVARIAN CANCER RECURRENT
     Dosage: CYCLE 1
     Route: 042
  3. DOXIL [Suspect]
     Dosage: CYCLE 2
     Route: 042
  4. DOXIL [Suspect]
     Dosage: CYCLE 3
     Route: 042

REACTIONS (2)
  - MYELITIS [None]
  - SPINAL COMPRESSION FRACTURE [None]
